FAERS Safety Report 11948912 (Version 1)
Quarter: 2016Q1

REPORT INFORMATION
  Report Type: Spontaneous
  Country: US (occurrence: None)
  Receive Date: 20160121
  Receipt Date: 20160121
  Transmission Date: 20160526
  Serious: Yes (Hospitalization)
  Sender: FDA-Public Use
  Company Number: None

PATIENT
  Age: 64 Year
  Sex: Male
  Weight: 60 kg

DRUGS (2)
  1. EPOETIN ALFA [Concomitant]
     Active Substance: ERYTHROPOIETIN
  2. FERAHEME [Suspect]
     Active Substance: FERUMOXYTOL NON-STOICHIOMETRIC MAGNETITE
     Indication: ANAEMIA
     Route: 042
     Dates: start: 20160108, end: 20160108

REACTIONS (8)
  - Dyspnoea [None]
  - Blood pressure increased [None]
  - Respiratory rate increased [None]
  - Generalised tonic-clonic seizure [None]
  - Back pain [None]
  - Infusion related reaction [None]
  - Hyperhidrosis [None]
  - Oxygen saturation decreased [None]

NARRATIVE: CASE EVENT DATE: 20160108
